APPROVED DRUG PRODUCT: MONISTAT 5
Active Ingredient: MICONAZOLE NITRATE
Strength: 100MG
Dosage Form/Route: TAMPON;VAGINAL
Application: N018592 | Product #001
Applicant: PERSONAL PRODUCTS CO
Approved: Oct 27, 1989 | RLD: No | RS: No | Type: DISCN